FAERS Safety Report 9222515 (Version 2)
Quarter: 2013Q2

REPORT INFORMATION
  Report Type: Spontaneous
  Country: US (occurrence: US)
  Receive Date: 20130410
  Receipt Date: 20130425
  Transmission Date: 20140414
  Serious: Yes (Hospitalization, Other)
  Sender: FDA-Public Use
  Company Number: US-SANOFI-AVENTIS-2013SA036023

PATIENT
  Age: 58 Year
  Sex: Female

DRUGS (14)
  1. AUBAGIO [Suspect]
     Indication: MULTIPLE SCLEROSIS
     Route: 048
     Dates: start: 201302, end: 20130403
  2. ALENDRONATE SODIUM [Concomitant]
     Route: 048
  3. BACLOFEN [Concomitant]
     Route: 048
  4. CENTRUM [Concomitant]
     Route: 048
  5. IRON [Concomitant]
     Route: 048
  6. OCUVITE [Concomitant]
     Route: 048
  7. PRO-AIR [Concomitant]
     Indication: DYSPNOEA
  8. VENLAFAXINE [Concomitant]
  9. VESICARE [Concomitant]
     Route: 048
  10. VITAMIN B12 [Concomitant]
     Route: 048
  11. VITAMIN D3 [Concomitant]
  12. CYSTEX [Concomitant]
     Route: 048
  13. NAPROXEN [Concomitant]
  14. CITRACAL [Concomitant]
     Route: 048

REACTIONS (4)
  - Cystitis [Recovered/Resolved]
  - Sepsis [Recovered/Resolved]
  - Cardiac disorder [Unknown]
  - Hypertension [Unknown]
